FAERS Safety Report 10332549 (Version 2)
Quarter: 2014Q3

REPORT INFORMATION
  Report Type: Spontaneous
  Country: US (occurrence: US)
  Receive Date: 20140722
  Receipt Date: 20140722
  Transmission Date: 20150326
  Serious: No
  Sender: FDA-Public Use
  Company Number: US-UNITED THERAPEUTICS-UTC-041484

PATIENT
  Sex: Female
  Weight: 108.1 kg

DRUGS (4)
  1. REVATIO [Concomitant]
     Active Substance: SILDENAFIL CITRATE
  2. REMODULIN [Suspect]
     Active Substance: TREPROSTINIL
     Route: 041
     Dates: start: 20101019
  3. LETAIRIS [Suspect]
     Active Substance: AMBRISENTAN
     Route: 065
     Dates: start: 20121121
  4. COUMADIN [Concomitant]
     Active Substance: WARFARIN SODIUM

REACTIONS (2)
  - Weight decreased [Not Recovered/Not Resolved]
  - Pain [Unknown]
